FAERS Safety Report 7702270-0 (Version None)
Quarter: 2011Q3

REPORT INFORMATION
  Report Type: 
  Country: None (occurrence: None)
  Receive Date: 20110822
  Receipt Date: 20110816
  Transmission Date: 20111222
  Serious: Yes (Hospitalization, Other)
  Sender: FDA-Public Use
  Company Number: DE-ABBOTT-11P-062-0847520-00

PATIENT
  Age: 75 Year
  Sex: Female

DRUGS (5)
  1. HUMIRA [Suspect]
     Indication: PRODUCT USED FOR UNKNOWN INDICATION
     Route: 058
     Dates: start: 20030501, end: 20031101
  2. METHOTREXATE [Suspect]
     Indication: PRODUCT USED FOR UNKNOWN INDICATION
     Dates: start: 20031110
  3. METHOTREXATE [Suspect]
     Dates: start: 20041028
  4. INFLIXIMAB [Concomitant]
     Indication: PRODUCT USED FOR UNKNOWN INDICATION
     Dates: start: 20021001, end: 20021101
  5. HUMIRA [Suspect]
     Route: 058
     Dates: start: 20040401

REACTIONS (3)
  - RENAL FAILURE ACUTE [None]
  - GASTRITIS [None]
  - ANGINA PECTORIS [None]
